FAERS Safety Report 25287872 (Version 1)
Quarter: 2025Q2

REPORT INFORMATION
  Report Type: Spontaneous
  Country: TW (occurrence: TW)
  Receive Date: 20250509
  Receipt Date: 20250509
  Transmission Date: 20250717
  Serious: Yes (Other)
  Sender: FRESENIUS KABI
  Company Number: TW-FreseniusKabi-FK202506579

PATIENT
  Age: 70 Year
  Sex: Female
  Weight: 46 kg

DRUGS (6)
  1. CISPLATIN [Suspect]
     Active Substance: CISPLATIN
     Indication: Lung neoplasm malignant
     Route: 041
     Dates: start: 20250214
  2. CISPLATIN [Suspect]
     Active Substance: CISPLATIN
     Route: 041
     Dates: start: 20250313
  3. CISPLATIN [Suspect]
     Active Substance: CISPLATIN
     Dosage: - 70MG (50MG/M2) IN SODIUM CHLORIDE 0.9 PERCENT 250ML IV PUMP 2HR WAS GIVEN.?- C3D1
     Route: 041
     Dates: start: 20250407, end: 20250407
  4. ALIMTA [Concomitant]
     Active Substance: PEMETREXED DISODIUM
     Indication: Lung neoplasm malignant
  5. FUROSEMIDE [Concomitant]
     Active Substance: FUROSEMIDE
     Indication: Product used for unknown indication
     Route: 041
     Dates: start: 20250407, end: 20250407
  6. SODIUM CHLORIDE [Concomitant]
     Active Substance: SODIUM CHLORIDE
     Indication: Product used for unknown indication
     Route: 042

REACTIONS (2)
  - Rash [Recovered/Resolved]
  - Nasal congestion [Recovered/Resolved]

NARRATIVE: CASE EVENT DATE: 20250407
